FAERS Safety Report 19728908 (Version 1)
Quarter: 2021Q3

REPORT INFORMATION
  Report Type: Spontaneous
  Country: DE (occurrence: DE)
  Receive Date: 20210820
  Receipt Date: 20210820
  Transmission Date: 20211014
  Serious: Yes (Hospitalization)
  Sender: FDA-Public Use
  Company Number: DE-PFIZER INC-202101011424

PATIENT
  Age: 67 Year
  Sex: Male

DRUGS (4)
  1. SERTRALINE HCL [Suspect]
     Active Substance: SERTRALINE HYDROCHLORIDE
     Dosage: 100 MG, 1X/DAY (1?0?0?0)
     Route: 048
  2. VENLAFAXINE HCL [Suspect]
     Active Substance: VENLAFAXINE HYDROCHLORIDE
     Dosage: 150 MG/DAY, DISCONTINUED IN LATE JUNE
     Route: 048
  3. MELPERON [Suspect]
     Active Substance: MELPERONE
     Dosage: 50 MG, 1X/DAY (1?0?0?0)
     Route: 048
  4. QUETIAPIN [Suspect]
     Active Substance: QUETIAPINE
     Dosage: 50 MG, DISCONTINUED LATE JUNE
     Route: 048

REACTIONS (2)
  - Restlessness [Unknown]
  - Anxiety [Unknown]
